FAERS Safety Report 10328413 (Version 2)
Quarter: 2014Q3

REPORT INFORMATION
  Report Type: Spontaneous
  Country: US (occurrence: US)
  Receive Date: 20140721
  Receipt Date: 20140721
  Transmission Date: 20150326
  Serious: Yes (Hospitalization, Other)
  Sender: FDA-Public Use
  Company Number: US-009507513-2010SP047114

PATIENT
  Sex: Female
  Weight: 127.1 kg

DRUGS (2)
  1. NUVARING [Suspect]
     Active Substance: ETHINYL ESTRADIOL\ETONOGESTREL
     Indication: CONTRACEPTION
     Dosage: UNK
     Route: 067
     Dates: start: 200810, end: 200902
  2. NUVARING [Suspect]
     Active Substance: ETHINYL ESTRADIOL\ETONOGESTREL
     Indication: MENORRHAGIA

REACTIONS (10)
  - Deep vein thrombosis [Unknown]
  - Upper respiratory tract infection [Unknown]
  - Cardiomegaly [Unknown]
  - Chest pain [Unknown]
  - Bronchitis [Unknown]
  - Pulmonary embolism [Recovered/Resolved]
  - Vulvovaginal mycotic infection [Unknown]
  - Pulmonary infarction [Unknown]
  - Anaemia [Unknown]
  - Uterine leiomyoma [Unknown]

NARRATIVE: CASE EVENT DATE: 200810
